FAERS Safety Report 7531657-4 (Version None)
Quarter: 2011Q2

REPORT INFORMATION
  Report Type: 
  Country: None (occurrence: None)
  Receive Date: 20110601
  Receipt Date: 20110525
  Transmission Date: 20111010
  Serious: Yes (Death)
  Sender: FDA-Public Use
  Company Number: 2010000307

PATIENT
  Age: 69 Year
  Sex: Female
  Weight: 63 kg

DRUGS (28)
  1. LIPITOR [Concomitant]
  2. DESONIDE [Concomitant]
  3. NYSTATIN [Concomitant]
  4. CP-751,871 (PLACEBO) [Suspect]
     Indication: NON-SMALL CELL LUNG CANCER
     Dosage: 1266 MG, Q3W, IV NOS
     Route: 042
     Dates: start: 20090716, end: 20091229
  5. ARTIFICIAL TEARS (ARTIFICIAL TEARS) [Concomitant]
  6. MAGIC MOUTHWASH (ALUMINUM HYDROXIDE DIPHENHYDRAMINE HYDROCHLORIDE LIDO [Concomitant]
  7. HYADERM (NYSTATIN) [Concomitant]
  8. ERLOTINIB (ERLOTINIB HYDROCHLORIDE) TABLET [Suspect]
     Indication: NON-SMALL CELL LUNG CANCER
     Dosage: 50, 100 MG, UID/QD, ORAL
     Route: 048
     Dates: start: 20090716, end: 20090818
  9. ERLOTINIB (ERLOTINIB HYDROCHLORIDE) TABLET [Suspect]
     Indication: NON-SMALL CELL LUNG CANCER
     Dosage: 50, 100 MG, UID/QD, ORAL
     Route: 048
     Dates: start: 20091029, end: 20100106
  10. ERLOTINIB (ERLOTINIB HYDROCHLORIDE) TABLET [Suspect]
     Indication: NON-SMALL CELL LUNG CANCER
     Dosage: 50, 100 MG, UID/QD, ORAL
     Route: 048
     Dates: start: 20090819, end: 20091028
  11. SOLAFALK (MESALAZINE) [Concomitant]
  12. VITAMIN D [Concomitant]
  13. HYDROCORTISONE ACETATE (HYDROCORTISONE ACETATE) [Concomitant]
  14. PEDIALYTE (PEDIALYTE) [Concomitant]
  15. PREMARIN [Concomitant]
  16. CALCIUM (CALCIUM) [Concomitant]
  17. HYDROCORTONE [Concomitant]
  18. CLAVULIN (CLAVULIN) [Concomitant]
  19. LYRICA [Concomitant]
  20. IMODIUM [Concomitant]
  21. LOVENOX [Concomitant]
  22. RIVASA (ACETYLSALICYLIC ACID) [Concomitant]
  23. METAMUCIL (GLUCOSE MONOHYDRATE) [Concomitant]
  24. CIPROFLOXACIN [Concomitant]
  25. COLACE (DOCUSATE SODIUM) [Concomitant]
  26. ACETAMINOPHEN [Concomitant]
  27. ZANTAC [Concomitant]
  28. ZINC (ZINC) [Concomitant]

REACTIONS (5)
  - INTESTINAL ISCHAEMIA [None]
  - ASTHENIA [None]
  - GENERAL PHYSICAL HEALTH DETERIORATION [None]
  - METABOLIC ACIDOSIS [None]
  - CARDIO-RESPIRATORY ARREST [None]
